FAERS Safety Report 15107307 (Version 1)
Quarter: 2018Q3

REPORT INFORMATION
  Report Type: Spontaneous
  Country: US (occurrence: US)
  Receive Date: 20180704
  Receipt Date: 20180704
  Transmission Date: 20181010
  Serious: No
  Sender: FDA-Public Use
  Company Number: US-PFIZER INC-2017377969

PATIENT
  Age: 59 Year
  Sex: Female
  Weight: 84.82 kg

DRUGS (1)
  1. DOCETAXEL. [Suspect]
     Active Substance: DOCETAXEL
     Indication: BREAST CANCER FEMALE
     Dosage: UNK, EVERY 3 WEEKS
     Dates: start: 201102, end: 201107

REACTIONS (6)
  - Madarosis [Unknown]
  - Hair colour changes [Unknown]
  - Stress [Unknown]
  - Alopecia [Not Recovered/Not Resolved]
  - Hair disorder [Unknown]
  - Hair texture abnormal [Unknown]

NARRATIVE: CASE EVENT DATE: 2011
